FAERS Safety Report 7511003-2 (Version None)
Quarter: 2011Q2

REPORT INFORMATION
  Report Type: 
  Country: None (occurrence: None)
  Receive Date: 20110531
  Receipt Date: 20110520
  Transmission Date: 20111010
  Serious: No
  Sender: FDA-Public Use
  Company Number: US-PFIZER INC-2011113095

PATIENT
  Sex: Female
  Weight: 63.5 kg

DRUGS (2)
  1. ESTRING [Suspect]
     Indication: VULVOVAGINAL DRYNESS
     Dosage: UNK
     Dates: start: 20080101
  2. ESTRING [Interacting]
     Dosage: UNK
     Dates: start: 20090101

REACTIONS (1)
  - BREAST PAIN [None]
